FAERS Safety Report 9936940 (Version 1)
Quarter: 2014Q1

REPORT INFORMATION
  Report Type: Spontaneous
  Country: US (occurrence: None)
  Receive Date: 20140115
  Receipt Date: 20140115
  Transmission Date: 20141002
  Serious: No
  Sender: FDA-Public Use
  Company Number: 2013US002739

PATIENT
  Age: 68 Year
  Sex: Female
  Weight: 58 kg

DRUGS (13)
  1. ICLUSIG (PONATINIB) TABLET, 45MG [Suspect]
     Indication: ACUTE LYMPHOCYTIC LEUKAEMIA
     Route: 048
  2. ACYCLOVIR (ACYCLOVIR) [Concomitant]
  3. NEXIUM (ESOMEPRAZOLE MAGNESIUM) [Concomitant]
  4. LORAZEPAM (LORAZEPAM) [Concomitant]
  5. METHOTREXATE (METHOTREXATE SODIUM) [Concomitant]
  6. SULFAMETHOXAZOLE (SULFAMETHOXAZOLE) [Concomitant]
  7. CALCIUM (CALCIUM) [Concomitant]
  8. FOLIC ACID (FOLIC ACID) [Concomitant]
  9. ZOLPIDEM (ZOLPIDEM) [Concomitant]
  10. ZOFRAN (ONDANSETRON HYDROCHLORIDE) [Concomitant]
  11. COLACE [Concomitant]
  12. OXYCODONE (OXYCODONE) [Concomitant]
  13. TRAMADOL (TRAMADOL) [Concomitant]

REACTIONS (2)
  - Pancreatic disorder [None]
  - Abdominal discomfort [None]
